FAERS Safety Report 6326905-2 (Version None)
Quarter: 2009Q3

REPORT INFORMATION
  Report Type: 
  Country: None (occurrence: None)
  Receive Date: 20090825
  Receipt Date: 20090817
  Transmission Date: 20100115
  Serious: Yes (Other)
  Sender: FDA-Public Use
  Company Number: GB-PFIZER INC-2009235664

PATIENT
  Age: 39 Year

DRUGS (2)
  1. ZYVOX [Suspect]
     Indication: INFECTION
  2. TEICOPLANIN [Concomitant]

REACTIONS (3)
  - FEELING ABNORMAL [None]
  - PSYCHOTIC BEHAVIOUR [None]
  - PSYCHOTIC DISORDER [None]
